FAERS Safety Report 4335962-4 (Version None)
Quarter: 2004Q2

REPORT INFORMATION
  Report Type: 
  Country: None (occurrence: None)
  Receive Date: 20040406
  Receipt Date: 20040305
  Transmission Date: 20050107
  Serious: Yes (Life-Threatening)
  Sender: FDA-Public Use
  Company Number: 2003GB00121

PATIENT
  Age: 57 Year
  Sex: Female

DRUGS (3)
  1. LISINOPRIL [Suspect]
     Indication: HYPERTENSION
     Dosage: 10 MG DAILY PO
     Route: 048
     Dates: start: 20021201, end: 20021223
  2. BENDROFLUAZIDE [Concomitant]
  3. UNSPECIFIED [Concomitant]

REACTIONS (6)
  - ANGIONEUROTIC OEDEMA [None]
  - DRUG INEFFECTIVE [None]
  - DYSPNOEA [None]
  - HYPERTENSION [None]
  - OBSTRUCTIVE AIRWAYS DISORDER [None]
  - POST PROCEDURAL COMPLICATION [None]
